FAERS Safety Report 10256559 (Version 1)
Quarter: 2014Q2

REPORT INFORMATION
  Report Type: Spontaneous
  Country: US (occurrence: US)
  Receive Date: 20140624
  Receipt Date: 20140624
  Transmission Date: 20141212
  Serious: No
  Sender: FDA-Public Use
  Company Number: US-ZOGENIX, INC.-2011ZX000383

PATIENT
  Age: 42 Year
  Sex: Female
  Weight: 68.1 kg

DRUGS (4)
  1. SUMAVEL DOSEPRO [Suspect]
     Indication: MIGRAINE
  2. DEPAKOTE [Concomitant]
     Indication: ANXIETY
     Route: 048
  3. TRAZODONE [Concomitant]
     Indication: ANXIETY
     Route: 048
  4. TOPAMAX [Concomitant]
     Indication: MIGRAINE
     Route: 048

REACTIONS (4)
  - Heart rate increased [Recovered/Resolved]
  - Injection site haemorrhage [Recovered/Resolved]
  - Drug ineffective [Recovered/Resolved]
  - Drug administered at inappropriate site [Recovered/Resolved]
